FAERS Safety Report 18969727 (Version 3)
Quarter: 2021Q4

REPORT INFORMATION
  Report Type: Other
  Country: AU (occurrence: AU)
  Receive Date: 20210304
  Receipt Date: 20211223
  Transmission Date: 20220304
  Serious: No
  Sender: FDA-Public Use
  Company Number: AU-TOLMAR, INC.-21AU025550

PATIENT
  Sex: Male

DRUGS (1)
  1. ELIGARD [Suspect]
     Active Substance: LEUPROLIDE ACETATE
     Indication: Prostate cancer
     Dosage: 45 MG, Q 6 MONTH
     Dates: start: 20190720

REACTIONS (2)
  - Diabetic ulcer [Not Recovered/Not Resolved]
  - Depressed mood [Unknown]
